FAERS Safety Report 6385295-X (Version None)
Quarter: 2009Q4

REPORT INFORMATION
  Report Type: 
  Country: None (occurrence: None)
  Receive Date: 20091002
  Receipt Date: 20080822
  Transmission Date: 20100525
  Serious: No
  Sender: FDA-Public Use
  Company Number: US-ASTRAZENECA-2008UW17019

PATIENT
  Age: 55 Year
  Sex: Female
  Weight: 61.2 kg

DRUGS (6)
  1. ARIMIDEX [Suspect]
     Indication: BREAST CANCER
     Route: 048
  2. FOLIC ACID [Concomitant]
  3. FISH OIL [Concomitant]
  4. MULTI-VITAMINS [Concomitant]
  5. TAMOXIFEN CITRATE [Concomitant]
     Route: 048
  6. AROMASIN [Concomitant]

REACTIONS (3)
  - ALOPECIA [None]
  - ARTHRALGIA [None]
  - WEIGHT LOSS POOR [None]
